FAERS Safety Report 20089534 (Version 1)
Quarter: 2021Q4

REPORT INFORMATION
  Report Type: Spontaneous
  Country: BR (occurrence: BR)
  Receive Date: 20211119
  Receipt Date: 20211119
  Transmission Date: 20220303
  Serious: Yes (Other)
  Sender: FDA-Public Use
  Company Number: BR-NOVOPROD-865969

PATIENT
  Age: 75 Year
  Sex: Female
  Weight: 54 kg

DRUGS (11)
  1. LEVEMIR [Suspect]
     Active Substance: INSULIN DETEMIR
     Indication: Diabetes mellitus
     Dosage: 27-12
     Route: 065
  2. INDAPAMIDE [Concomitant]
     Active Substance: INDAPAMIDE
     Indication: Product used for unknown indication
     Dosage: 1.5 MG
     Route: 065
  3. TELMISARTAN [Concomitant]
     Active Substance: TELMISARTAN
     Indication: Product used for unknown indication
     Dosage: 80MG
     Route: 065
  4. AMLODIPINE [Concomitant]
     Active Substance: AMLODIPINE BESYLATE
     Indication: Product used for unknown indication
     Dosage: 5 MG
     Route: 065
  5. BISOPROLOL [Concomitant]
     Active Substance: BISOPROLOL
     Indication: Product used for unknown indication
     Dosage: 2.5 MG
     Route: 065
  6. ATORVASTATIN [Concomitant]
     Active Substance: ATORVASTATIN
     Indication: Product used for unknown indication
     Dosage: 40 MG
     Route: 065
  7. DESVENLAFAXINE [Concomitant]
     Active Substance: DESVENLAFAXINE
     Indication: Product used for unknown indication
     Dosage: 50 MG
     Route: 065
  8. SITAGLIPTIN [Concomitant]
     Active Substance: SITAGLIPTIN
     Indication: Product used for unknown indication
     Dosage: 50 MG
     Route: 065
  9. TRESIBA [Concomitant]
     Active Substance: INSULIN DEGLUDEC
     Dosage: 31 UNITS
     Route: 065
  10. TRESIBA [Concomitant]
     Active Substance: INSULIN DEGLUDEC
     Dosage: 20%
     Route: 065
  11. FIASP [Concomitant]
     Active Substance: INSULIN ASPART
     Dosage: 3+3+3 (70-120)
     Route: 065

REACTIONS (2)
  - Transitional cell cancer of the renal pelvis and ureter [Unknown]
  - Hyperglycaemia [Unknown]

NARRATIVE: CASE EVENT DATE: 20200301
